FAERS Safety Report 8208168-6 (Version None)
Quarter: 2012Q1

REPORT INFORMATION
  Report Type: 
  Country: None (occurrence: None)
  Receive Date: 20120314
  Receipt Date: 20120307
  Transmission Date: 20120608
  Serious: Yes (Other)
  Sender: FDA-Public Use
  Company Number: PHHY2012JP021075

PATIENT
  Sex: Female
  Weight: 50 kg

DRUGS (8)
  1. FEMARA [Concomitant]
     Indication: BREAST CANCER METASTATIC
     Dosage: 2.5 MG, UNK
     Route: 048
     Dates: start: 20101112
  2. SELBEX [Concomitant]
     Dosage: 100 MG, UNK
     Route: 048
  3. LOXOPROFEN [Concomitant]
     Dosage: 60 MG, UNK
     Route: 048
  4. ZOMETA [Suspect]
     Indication: METASTASES TO BONE
     Dosage: 4 MG (PER ADMINISTRATION)
     Route: 041
     Dates: start: 20100326, end: 20110812
  5. SANMEL [Concomitant]
     Dosage: 60 MG, UNK
     Route: 048
  6. ARIMIDEX [Concomitant]
     Dosage: 1 MG, UNK
     Dates: start: 20100326, end: 20100819
  7. AROMASIN [Concomitant]
     Dosage: 25 MG, UNK
     Route: 048
     Dates: start: 20100820, end: 20101111
  8. OXYCONTIN [Concomitant]
     Dosage: 10 MG, UNK
     Route: 048
     Dates: start: 20110530

REACTIONS (5)
  - PSYCHOSOMATIC DISEASE [None]
  - TOOTHACHE [None]
  - OSTEONECROSIS OF JAW [None]
  - ERYTHEMA [None]
  - PERIODONTITIS [None]
